FAERS Safety Report 6901014-X (Version None)
Quarter: 2010Q3

REPORT INFORMATION
  Report Type: 
  Country: None (occurrence: None)
  Receive Date: 20100803
  Receipt Date: 20100727
  Transmission Date: 20110219
  Serious: Yes (Other)
  Sender: FDA-Public Use
  Company Number: US-SANOFI-AVENTIS-2010SA045263

PATIENT
  Age: 80 Year
  Sex: Female

DRUGS (9)
  1. PLAVIX [Suspect]
     Route: 048
     Dates: start: 20040101
  2. PLAVIX [Suspect]
     Indication: STENT PLACEMENT
     Route: 048
     Dates: start: 20040101
  3. VALSARTAN [Concomitant]
  4. HYDROCHLOROTHIAZIDE [Concomitant]
  5. ASPIRIN [Concomitant]
  6. VICODIN [Concomitant]
  7. LOVASTATIN [Concomitant]
  8. ATENOLOL [Concomitant]
  9. GLUCOPHAGE [Concomitant]

REACTIONS (2)
  - SPINAL CORD NEOPLASM [None]
  - SPINAL FRACTURE [None]
